FAERS Safety Report 6553062-X (Version None)
Quarter: 2010Q1

REPORT INFORMATION
  Report Type: 
  Country: None (occurrence: None)
  Receive Date: 20100127
  Receipt Date: 20100115
  Transmission Date: 20100710
  Serious: Yes (Hospitalization)
  Sender: FDA-Public Use
  Company Number: US-WYE-H13072210

PATIENT
  Sex: Female
  Weight: 59.02 kg

DRUGS (9)
  1. PREMARIN [Suspect]
     Indication: VAGINAL DISCHARGE
     Route: 067
     Dates: start: 20090101
  2. GABAPENTIN [Concomitant]
     Indication: INSOMNIA
  3. ZOCOR [Concomitant]
  4. BONIVA [Concomitant]
  5. CALCIUM [Concomitant]
  6. CYANOCOBALAMIN [Concomitant]
  7. PRISTIQ [Concomitant]
  8. PROTONIX [Concomitant]
  9. ACETYLSALICYLIC ACID [Concomitant]

REACTIONS (1)
  - URINARY TRACT INFECTION [None]
